FAERS Safety Report 16686964 (Version 2)
Quarter: 2019Q3

REPORT INFORMATION
  Report Type: Spontaneous
  Country: BE (occurrence: BE)
  Receive Date: 20190809
  Receipt Date: 20190818
  Transmission Date: 20191004
  Serious: Yes (Hospitalization, Other)
  Sender: FDA-Public Use
  Company Number: BE-AMGEN-BELSP2019125652

PATIENT
  Age: 54 Year
  Sex: Female

DRUGS (5)
  1. ROACCUTANE [Concomitant]
     Active Substance: ISOTRETINOIN
     Indication: SKIN DISORDER
     Dosage: 10 MILLIGRAM, QD
     Route: 048
  2. ENDOXAN [CYCLOPHOSPHAMIDE] [Suspect]
     Active Substance: CYCLOPHOSPHAMIDE
     Indication: INVASIVE DUCTAL BREAST CARCINOMA
     Dosage: 1026 MILLIGRAM, Q2WK
     Route: 042
     Dates: start: 20190408, end: 20190520
  3. NEULASTA [Suspect]
     Active Substance: PEGFILGRASTIM
     Indication: PRODUCT USED FOR UNKNOWN INDICATION
     Dosage: 6 MILLIGRAM, Q2WK
     Route: 058
  4. FLUVOXAMINE [Concomitant]
     Active Substance: FLUVOXAMINE
     Indication: DEPRESSION
     Dosage: 100 MILLIGRAM, QD
     Route: 048
  5. EPIRUBICIN [Concomitant]
     Active Substance: EPIRUBICIN
     Indication: INVASIVE DUCTAL BREAST CARCINOMA
     Dosage: 153.6 MILLIGRAM, Q2WK
     Route: 042
     Dates: start: 20190408, end: 20190520

REACTIONS (8)
  - Neutrophilia [Recovered/Resolved]
  - Pyrexia [Recovered/Resolved]
  - Malaise [Recovered/Resolved]
  - Drug interaction [Recovered/Resolved]
  - Acute interstitial pneumonitis [Recovered/Resolved]
  - Lung infiltration [Recovered/Resolved]
  - Leukocytosis [Recovered/Resolved]
  - Alveolitis [Recovered/Resolved]

NARRATIVE: CASE EVENT DATE: 20190530
